FAERS Safety Report 4334890-8 (Version None)
Quarter: 2004Q2

REPORT INFORMATION
  Report Type: 
  Country: None (occurrence: None)
  Receive Date: 20040405
  Receipt Date: 20040324
  Transmission Date: 20050107
  Serious: No
  Sender: FDA-Public Use
  Company Number: 2004SE00917

PATIENT
  Age: 56 Year
  Sex: Male

DRUGS (2)
  1. SEROQUEL [Suspect]
     Indication: PSYCHOTIC DISORDER
     Dosage: 300 MG TID PO
     Route: 048
     Dates: start: 20030101
  2. DIAMICRON [Concomitant]

REACTIONS (1)
  - HEPATIC FAILURE [None]
